FAERS Safety Report 21142008 (Version 4)
Quarter: 2022Q3

REPORT INFORMATION
  Report Type: Report from Study
  Country: CN (occurrence: CN)
  Receive Date: 20220728
  Receipt Date: 20220810
  Transmission Date: 20221027
  Serious: Yes (Death, Hospitalization, Other)
  Sender: FDA-Public Use
  Company Number: CN-BRISTOL-MYERS SQUIBB COMPANY-2022-080217

PATIENT
  Age: 48 Year
  Sex: Male
  Weight: 75.80 kg

DRUGS (11)
  1. AZACITIDINE [Suspect]
     Active Substance: AZACITIDINE
     Indication: Myelodysplastic syndrome
     Route: 058
     Dates: start: 20220524, end: 20220530
  2. AZACITIDINE [Suspect]
     Active Substance: AZACITIDINE
     Route: 058
     Dates: start: 20220621, end: 20220627
  3. APG-115 [Suspect]
     Active Substance: APG-115
     Indication: Myelodysplastic syndrome
     Route: 048
     Dates: start: 20220524, end: 20220530
  4. APG-115 [Suspect]
     Active Substance: APG-115
     Route: 048
     Dates: start: 20220621, end: 20220627
  5. SODIUM BICARBONATE [Concomitant]
     Active Substance: SODIUM BICARBONATE
     Indication: Product used for unknown indication
     Dosage: 7.5G, IV DRIP, ALKALINE LIQUID
     Route: 041
     Dates: start: 20220718
  6. GRANULOCYTE COLONY-STIMULATING FACTOR NOS [Concomitant]
     Active Substance: GRANULOCYTE COLONY-STIMULATING FACTOR NOS
     Indication: White blood cell disorder
     Dosage: 300UG, TWICE DAILY,
     Route: 041
     Dates: start: 20220718
  7. INSULIN NOS [Concomitant]
     Active Substance: INSULIN NOS
     Indication: Diabetes mellitus
     Dosage: 5 UNIT, IV DRIP, FOR REDUCING BLOOD GLUCOSE
     Route: 041
     Dates: start: 20220718
  8. VITAMIN C INJEEL [Concomitant]
     Indication: Capillary permeability increased
     Dosage: 20ML, IV DRIP
     Route: 041
     Dates: start: 20220718
  9. INOSINE [Concomitant]
     Active Substance: INOSINE
     Indication: Platelet count decreased
     Route: 041
     Dates: start: 20220718
  10. CALCIUM CHLORIDE\POTASSIUM CHLORIDE\SODIUM CHLORIDE [Concomitant]
     Active Substance: CALCIUM CHLORIDE\POTASSIUM CHLORIDE\SODIUM CHLORIDE
     Indication: Prophylaxis
     Dosage: 500ML, IV DRIP
     Route: 041
     Dates: start: 20220718
  11. DEXAMETHASONE SODIUM PHOSPHATE [Concomitant]
     Active Substance: DEXAMETHASONE SODIUM PHOSPHATE
     Indication: Pyrexia
     Dosage: 5MG, IV DRIP
     Route: 041
     Dates: start: 20220718

REACTIONS (2)
  - Death [Fatal]
  - Infection [Unknown]

NARRATIVE: CASE EVENT DATE: 20220716
